FAERS Safety Report 23762707 (Version 1)
Quarter: 2024Q2

REPORT INFORMATION
  Report Type: Spontaneous
  Country: US (occurrence: US)
  Receive Date: 20240419
  Receipt Date: 20240419
  Transmission Date: 20240716
  Serious: No
  Sender: FDA-Public Use
  Company Number: US-INCYTE CORPORATION-2024IN003882

PATIENT

DRUGS (2)
  1. JAKAFI [Suspect]
     Active Substance: RUXOLITINIB
     Indication: Acute lymphocytic leukaemia
     Dosage: 25 MILLIGRAM (4 TABLETS TWICE DAILY) FOR 14 DAYS ON THEN 14 DAYS OFF
     Route: 048
  2. JAKAFI [Suspect]
     Active Substance: RUXOLITINIB
     Dosage: 100 MILLIGRAM (BID FOR 14 DAYS THEN 14 DAYS OFF)
     Route: 048

REACTIONS (2)
  - Off label use [Unknown]
  - Prescribed overdose [Unknown]
